FAERS Safety Report 6724421-7 (Version None)
Quarter: 2010Q2

REPORT INFORMATION
  Report Type: 
  Country: None (occurrence: None)
  Receive Date: 20100513
  Receipt Date: 20100507
  Transmission Date: 20101027
  Serious: Yes (Hospitalization)
  Sender: FDA-Public Use
  Company Number: US-RB-003971-10

PATIENT
  Age: 44 Year
  Sex: Female

DRUGS (1)
  1. SUBOXONE [Suspect]
     Route: 060
     Dates: start: 20090301

REACTIONS (4)
  - FACIAL PAIN [None]
  - OSTEOMYELITIS [None]
  - PAIN IN JAW [None]
  - SWELLING FACE [None]
